FAERS Safety Report 22154400 (Version 3)
Quarter: 2023Q2

REPORT INFORMATION
  Report Type: Spontaneous
  Country: US (occurrence: US)
  Receive Date: 20230330
  Receipt Date: 20230413
  Transmission Date: 20230722
  Serious: Yes (Hospitalization, Other)
  Sender: FDA-Public Use
  Company Number: US-IPSEN Group, Research and Development-2023-07409

PATIENT
  Age: 76 Year
  Sex: Female
  Weight: 97.1 kg

DRUGS (4)
  1. ONIVYDE [Suspect]
     Active Substance: IRINOTECAN HYDROCHLORIDE
     Indication: Gastrooesophageal cancer
     Dosage: STRENGTH: 10ML/43MG
     Route: 041
     Dates: start: 20230308, end: 20230308
  2. FLUOROURACIL [Concomitant]
     Active Substance: FLUOROURACIL
     Dates: start: 20230308, end: 20230310
  3. OXALIPLATIN [Concomitant]
     Active Substance: OXALIPLATIN
     Dates: start: 20230308, end: 20230308
  4. LEUCOVORIN [Concomitant]
     Active Substance: LEUCOVORIN
     Dates: start: 20230308, end: 20230308

REACTIONS (16)
  - Nausea [Recovering/Resolving]
  - Vomiting [Recovering/Resolving]
  - Diarrhoea [Recovering/Resolving]
  - Fatigue [Recovering/Resolving]
  - Abdominal pain [Recovering/Resolving]
  - Asthenia [Recovering/Resolving]
  - Eating disorder [Recovering/Resolving]
  - Weight decreased [Recovering/Resolving]
  - Retching [Recovering/Resolving]
  - Dehydration [Unknown]
  - Hypokalaemia [Unknown]
  - Hypophosphataemia [Unknown]
  - Hypoalbuminaemia [Unknown]
  - Lymphocyte count decreased [Unknown]
  - Dysuria [Unknown]
  - Product use in unapproved indication [Unknown]

NARRATIVE: CASE EVENT DATE: 20230321
